FAERS Safety Report 23534911 (Version 1)
Quarter: 2024Q1

REPORT INFORMATION
  Report Type: Spontaneous
  Country: IT (occurrence: IT)
  Receive Date: 20240217
  Receipt Date: 20240217
  Transmission Date: 20240409
  Serious: Yes (Other)
  Sender: FDA-Public Use
  Company Number: IT-AMGEN-ITASP2024029945

PATIENT
  Sex: Female

DRUGS (3)
  1. ADALIMUMAB [Suspect]
     Active Substance: ADALIMUMAB\ISOPROPYL ALCOHOL
     Indication: Iridocyclitis
     Dosage: 30-40 MILLIGRAM, Q2WK
     Route: 065
  2. INFLIXIMAB [Suspect]
     Active Substance: INFLIXIMAB
     Indication: Iridocyclitis
     Dosage: 10 MILLIGRAM/KILOGRAM
     Route: 042
  3. CYCLOSPORINE [Suspect]
     Active Substance: CYCLOSPORINE
     Indication: Iridocyclitis
     Dosage: 2.5-5 MG/KG, QD
     Route: 065

REACTIONS (3)
  - Iris adhesions [Recovered/Resolved]
  - Cataract [Recovered/Resolved]
  - Optical coherence tomography abnormal [Unknown]
